FAERS Safety Report 5387610-2 (Version None)
Quarter: 2007Q3

REPORT INFORMATION
  Report Type: 
  Country: None (occurrence: None)
  Receive Date: 20070712
  Receipt Date: 20070702
  Transmission Date: 20080115
  Serious: Yes (Hospitalization, Other)
  Sender: FDA-Public Use
  Company Number: 2007RR-05845

PATIENT
  Age: 66 Year
  Sex: Male
  Weight: 91 kg

DRUGS (6)
  1. IBUPROFEN [Suspect]
     Indication: ARTHRITIS
     Dosage: 400 MG, TID, ORAL
     Route: 048
     Dates: start: 20050628, end: 20061004
  2. WARFARIN SODIUM [Concomitant]
  3. CLONAZEPAM [Concomitant]
  4. LORAZEPAM [Concomitant]
  5. PARACETAMOL (ACETAMINOPHEN/PARACETAMOL) [Concomitant]
  6. TRAMADOL HYDROCHLORIDE (TRAMADOL) [Concomitant]

REACTIONS (5)
  - HAEMATOMA [None]
  - HAEMORRHAGE [None]
  - INTERNATIONAL NORMALISED RATIO INCREASED [None]
  - NERVE COMPRESSION [None]
  - PAIN [None]
